FAERS Safety Report 5503206-3 (Version None)
Quarter: 2007Q4

REPORT INFORMATION
  Report Type: 
  Country: None (occurrence: None)
  Receive Date: 20071031
  Receipt Date: 20070926
  Transmission Date: 20080405
  Serious: No
  Sender: FDA-Public Use
  Company Number: CA-ASTRAZENECA-2007UW24398

PATIENT
  Sex: Female

DRUGS (1)
  1. SEROQUEL [Suspect]
     Route: 048

REACTIONS (3)
  - ANORGASMIA [None]
  - LIBIDO DECREASED [None]
  - SEXUAL DYSFUNCTION [None]
